FAERS Safety Report 15833573 (Version 4)
Quarter: 2019Q1

REPORT INFORMATION
  Report Type: Spontaneous
  Country: NL (occurrence: NL)
  Receive Date: 20190116
  Receipt Date: 20190311
  Transmission Date: 20190417
  Serious: Yes (Death, Other)
  Sender: FDA-Public Use
  Company Number: NL-MYLANLABS-2019M1003431

PATIENT
  Age: 77 Year
  Sex: Male

DRUGS (13)
  1. PREDNISONE. [Concomitant]
     Active Substance: PREDNISONE
     Indication: DISSEMINATED BACILLUS CALMETTE-GUERIN INFECTION
     Dosage: 20 MILLIGRAM, QD
     Route: 065
  2. ISONIAZID. [Suspect]
     Active Substance: ISONIAZID
     Indication: HEPATITIS A
     Dosage: 300 MILLIGRAM, MONTHLY
  3. ETHAMBUTOL [Suspect]
     Active Substance: ETHAMBUTOL HYDROCHLORIDE
     Indication: HEPATITIS A
     Dosage: 1600 MILLIGRAM, QD
     Route: 065
  4. RIFAMPICIN [Suspect]
     Active Substance: RIFAMPIN
     Indication: HEPATITIS A
     Dosage: 600 MILLIGRAM, MONTHLY
  5. RIFAMPICIN [Suspect]
     Active Substance: RIFAMPIN
     Indication: DISSEMINATED BACILLUS CALMETTE-GUERIN INFECTION
     Dosage: 600 MILLIGRAM, QD
     Route: 065
  6. ETHAMBUTOL [Suspect]
     Active Substance: ETHAMBUTOL HYDROCHLORIDE
     Indication: PNEUMONIA
     Dosage: 1600 MILLIGRAM, MONTHLY
  7. ISONIAZID. [Suspect]
     Active Substance: ISONIAZID
     Indication: PNEUMONIA
     Dosage: 300 MILLIGRAM, QD
     Route: 065
  8. RIFAMPICIN [Suspect]
     Active Substance: RIFAMPIN
     Indication: PNEUMONIA
     Dosage: UNK
  9. ETHAMBUTOL [Suspect]
     Active Substance: ETHAMBUTOL HYDROCHLORIDE
     Indication: DISSEMINATED BACILLUS CALMETTE-GUERIN INFECTION
     Dosage: UNK
  10. PREDNISONE. [Concomitant]
     Active Substance: PREDNISONE
     Indication: HEPATITIS A
     Dosage: UNK
     Route: 065
  11. ISONIAZID. [Suspect]
     Active Substance: ISONIAZID
     Indication: DISSEMINATED BACILLUS CALMETTE-GUERIN INFECTION
     Dosage: UNK
  12. BCG [Suspect]
     Active Substance: BCG VACCINE
     Indication: BLADDER CANCER
     Dosage: UNK
     Route: 043
  13. PREDNISONE. [Concomitant]
     Active Substance: PREDNISONE
     Indication: PNEUMONIA

REACTIONS (8)
  - Hepatitis [Fatal]
  - Hepatotoxicity [Fatal]
  - Hilar lymphadenopathy [Recovered/Resolved]
  - Cough [Recovered/Resolved]
  - Metastasis [Fatal]
  - Pneumonitis [Recovered/Resolved]
  - Pyrexia [Recovered/Resolved]
  - Dyspnoea [Recovered/Resolved]
